FAERS Safety Report 9594491 (Version 2)
Quarter: 2013Q4

REPORT INFORMATION
  Report Type: Spontaneous
  Country: US (occurrence: US)
  Receive Date: 20131004
  Receipt Date: 20131103
  Transmission Date: 20140711
  Serious: No
  Sender: FDA-Public Use
  Company Number: US-TEVA-435884USA

PATIENT
  Age: 54 Year
  Sex: Female

DRUGS (2)
  1. NUVIGIL [Suspect]
     Indication: MAJOR DEPRESSION
     Dosage: 300 MILLIGRAM DAILY; 150MG IN MORNING AND 150MG AT NOON
  2. PROVIGIL [Suspect]
     Indication: MAJOR DEPRESSION

REACTIONS (4)
  - Somnolence [Not Recovered/Not Resolved]
  - Drug ineffective [Not Recovered/Not Resolved]
  - Inappropriate schedule of drug administration [Not Recovered/Not Resolved]
  - Off label use [Unknown]
